FAERS Safety Report 25014361 (Version 1)
Quarter: 2025Q1

REPORT INFORMATION
  Report Type: Spontaneous
  Country: PT (occurrence: PT)
  Receive Date: 20250226
  Receipt Date: 20250226
  Transmission Date: 20250409
  Serious: Yes (Other)
  Sender: BAYER HEALTHCARE PHARMACEUTICALS INC.
  Company Number: None

PATIENT
  Age: 30 Year
  Sex: Male
  Weight: 78 kg

DRUGS (2)
  1. ULTRAVIST [Suspect]
     Active Substance: IOPROMIDE
     Indication: Imaging procedure
     Route: 042
     Dates: start: 20250103, end: 20250103
  2. INSULIN NOS [Concomitant]
     Active Substance: INSULIN NOS

REACTIONS (4)
  - Blister [Recovered/Resolved]
  - Pruritus [Recovered/Resolved]
  - Rhinorrhoea [Recovered/Resolved]
  - Sneezing [Recovered/Resolved]

NARRATIVE: CASE EVENT DATE: 20250103
